FAERS Safety Report 8083887-3 (Version None)
Quarter: 2012Q1

REPORT INFORMATION
  Report Type: 
  Country: None (occurrence: None)
  Receive Date: 20120128
  Receipt Date: 20110207
  Transmission Date: 20120608
  Serious: No
  Sender: FDA-Public Use
  Company Number: US-ABBOTT-11P-163-0703187-00

PATIENT
  Age: 68 Year
  Sex: Male

DRUGS (12)
  1. SIMVASTATIN [Concomitant]
     Indication: HIGH DENSITY LIPOPROTEIN DECREASED
     Dosage: 10MG DAILY
  2. BROMIDE NASAL SPRAY [Concomitant]
     Indication: NASAL CONGESTION
     Dosage: DAILY
     Route: 045
  3. LOVAZA [Concomitant]
     Indication: VITAMIN SUPPLEMENTATION
  4. METHOTREXATE [Concomitant]
     Indication: PRODUCT USED FOR UNKNOWN INDICATION
  5. LISINOPRIL [Concomitant]
     Indication: CARDIOVASCULAR EVENT PROPHYLAXIS
     Dosage: 10MG DAILY
  6. PEPCID [Concomitant]
     Indication: PROPHYLAXIS
  7. GLUCOSAMINE CHONDROITIN [Concomitant]
     Indication: VITAMIN SUPPLEMENTATION
     Dosage: 1500MG DAILY
  8. ANTICOAGULANT CITRATE PHOSPHATE DEXTROSE SOLUTION [Concomitant]
     Indication: VITAMIN SUPPLEMENTATION
  9. HUMIRA [Suspect]
     Indication: RHEUMATOID ARTHRITIS
     Dates: start: 20090701
  10. FOLIC ACID [Concomitant]
     Indication: VITAMIN SUPPLEMENTATION
     Dosage: 800MCG ON OPPOSITE DAYS OF MTX
  11. ASPIRIN [Concomitant]
     Indication: CARDIOVASCULAR EVENT PROPHYLAXIS
     Dosage: 81MG DAILY
  12. ASCORBIC ACID [Concomitant]
     Indication: VITAMIN SUPPLEMENTATION

REACTIONS (2)
  - CONTUSION [None]
  - SCAB [None]
